FAERS Safety Report 11695950 (Version 1)
Quarter: 2015Q4

REPORT INFORMATION
  Report Type: Spontaneous
  Country: US (occurrence: None)
  Receive Date: 20151103
  Receipt Date: 20151103
  Transmission Date: 20160304
  Serious: Yes (Hospitalization)
  Sender: FDA-Public Use
  Company Number: None

PATIENT
  Age: 68 Year
  Sex: Male
  Weight: 63.6 kg

DRUGS (2)
  1. PIPERACILLIN/TAZOBACTAM [Suspect]
     Active Substance: PIPERACILLIN SODIUM\TAZOBACTAM SODIUM
     Indication: DRUG THERAPY
     Route: 042
     Dates: start: 20151019, end: 20151020
  2. BENDAMUSTINE [Suspect]
     Active Substance: BENDAMUSTINE
     Indication: CHRONIC LYMPHOCYTIC LEUKAEMIA
     Route: 042
     Dates: start: 20151019, end: 20151019

REACTIONS (11)
  - Lethargy [None]
  - Anaphylactic reaction [None]
  - Hypotension [None]
  - Swelling face [None]
  - Type III immune complex mediated reaction [None]
  - Pyrexia [None]
  - Acute kidney injury [None]
  - Flushing [None]
  - Angioedema [None]
  - Rash maculo-papular [None]
  - Chills [None]

NARRATIVE: CASE EVENT DATE: 20151019
